FAERS Safety Report 21662411 (Version 1)
Quarter: 2022Q4

REPORT INFORMATION
  Report Type: Spontaneous
  Country: US (occurrence: None)
  Receive Date: 20221129
  Receipt Date: 20221129
  Transmission Date: 20230113
  Serious: No
  Sender: FDA-Public Use
  Company Number: None

PATIENT
  Sex: 0

DRUGS (1)
  1. BFF SKIN PERFECTOR SPF 30 BROAD SPECTRUM SUNSCREEN MEDIUM [Suspect]
     Active Substance: AVOBENZONE\HOMOSALATE\OCTISALATE

REACTIONS (3)
  - Adverse reaction [None]
  - Erythema [None]
  - Product formulation issue [None]

NARRATIVE: CASE EVENT DATE: 20221101
